FAERS Safety Report 19846695 (Version 1)
Quarter: 2021Q3

REPORT INFORMATION
  Report Type: Spontaneous
  Country: FR (occurrence: FR)
  Receive Date: 20210917
  Receipt Date: 20210917
  Transmission Date: 20211014
  Serious: Yes (Hospitalization)
  Sender: FDA-Public Use
  Company Number: FR-ACCORD-238806

PATIENT
  Age: 87 Year
  Sex: Female
  Weight: 43 kg

DRUGS (11)
  1. COLECALCIFEROL [Concomitant]
     Active Substance: CHOLECALCIFEROL
  2. METHOTREXATE. [Suspect]
     Active Substance: METHOTREXATE
     Indication: RHEUMATOID ARTHRITIS
     Dosage: 10 MG/ WEEK
     Route: 048
     Dates: end: 20210809
  3. NOCTAMIDE [Concomitant]
     Active Substance: LORMETAZEPAM
  4. OROCAL [Concomitant]
     Dosage: LOZENGE
  5. VESICARE [Concomitant]
     Active Substance: SOLIFENACIN SUCCINATE
  6. SPECIAFOLDINE [Concomitant]
     Active Substance: FOLIC ACID
  7. COMIRNATY [Concomitant]
     Active Substance: TOZINAMERAN
     Dosage: DISPERSION CONCENTRATE FOR INJECTION
  8. ORENCIA [Suspect]
     Active Substance: ABATACEPT
     Indication: RHEUMATOID ARTHRITIS
     Dosage: 500 MG / 5 WEEKS
     Route: 042
     Dates: start: 20100101, end: 20210709
  9. LANSOPRAZOLE. [Concomitant]
     Active Substance: LANSOPRAZOLE
  10. MIRTAZAPINE. [Concomitant]
     Active Substance: MIRTAZAPINE
  11. PAROXETINE. [Concomitant]
     Active Substance: PAROXETINE

REACTIONS (1)
  - Hepatic enzyme increased [Not Recovered/Not Resolved]

NARRATIVE: CASE EVENT DATE: 20210809
